FAERS Safety Report 25630770 (Version 1)
Quarter: 2025Q3

REPORT INFORMATION
  Report Type: Spontaneous
  Country: EU (occurrence: EU)
  Receive Date: 20250801
  Receipt Date: 20250801
  Transmission Date: 20251021
  Serious: Yes (Life-Threatening)
  Sender: ROCHE
  Company Number: None

PATIENT
  Age: 64 Year
  Sex: Female

DRUGS (23)
  1. TECENTRIQ [Suspect]
     Active Substance: ATEZOLIZUMAB
     Indication: Small cell lung cancer metastatic
     Dosage: STRENGTH: 1200 MG?DOSAGE: 1200 MG EVERY 4 WEEKS
     Route: 042
     Dates: start: 20250310, end: 20250602
  2. CARBOPLATIN [Concomitant]
     Active Substance: CARBOPLATIN
     Indication: Small cell lung cancer metastatic
     Dates: start: 202503
  3. CELLCEPT [Concomitant]
     Active Substance: MYCOPHENOLATE MOFETIL
     Indication: Small cell lung cancer metastatic
     Dates: start: 202503
  4. ATEZOLIZUMAB [Concomitant]
     Active Substance: ATEZOLIZUMAB
     Indication: Small cell lung cancer metastatic
     Dates: start: 202503
  5. EUTHYROX 100 MICROGRAM [Concomitant]
     Dosage: 1 TBL IN THE MORNING
  6. Lecalpin 20 MG [Concomitant]
     Dosage: 1 TBL IN THE MORNING
  7. BISOPROLOL FUMARATE [Concomitant]
     Active Substance: BISOPROLOL FUMARATE
     Dosage: 1 TBL IN THE MORNING
  8. Targinact 5 MG/ 2,5 MG [Concomitant]
     Dosage: STRENGHT: 5 MG/2,5 MG?DOSING: 1 TBL IN THE MORNING + 1 TBL IN THE EVENING
  9. MORPHINE SULFATE [Concomitant]
     Active Substance: MORPHINE SULFATE
     Indication: Breakthrough pain
  10. ATORIS 10 MG [Concomitant]
     Dosage: 1 TBL IN THE EVENING
  11. Prenewel 4 MG/1,25 MG [Concomitant]
     Dosage: STRENGHT: 4MG/1,25 MG?DOSING: 1 TBL IN THE EVENING
  12. Novolax 5 MG [Concomitant]
     Dosage: 1 TBL IN THE EVENING
  13. Mirzaten 30 MG [Concomitant]
     Dosage: 1 TBL IN THE EVENING
  14. Plivit D3 4000 IU [Concomitant]
     Dosage: STRENGHT: 4000 I.E./ML ?DOSING: 50GTT/1X WEEK
  15. ALPRAZOLAM [Concomitant]
     Active Substance: ALPRAZOLAM
  16. Nolpaza 40 MG [Concomitant]
  17. EUTHYROX 25 MICROGRAM [Concomitant]
  18. Ziextenzo 6 MG [Concomitant]
  19. Milgamma 100 MG/100 MG [Concomitant]
  20. Helex 0,5 MG [Concomitant]
  21. Amoksiklav 875 MG + 125 MG [Concomitant]
     Dates: start: 20250428
  22. Ciprinol 500 MG [Concomitant]
     Dates: start: 20250428
  23. REGLAN [Concomitant]
     Active Substance: METOCLOPRAMIDE HYDROCHLORIDE

REACTIONS (2)
  - Immune-mediated neuropathy [Recovering/Resolving]
  - Paraneoplastic neurological syndrome [Recovering/Resolving]

NARRATIVE: CASE EVENT DATE: 20250605
